FAERS Safety Report 16158458 (Version 1)
Quarter: 2019Q2

REPORT INFORMATION
  Report Type: Report from Study
  Country: None (occurrence: US)
  Receive Date: 20190404
  Receipt Date: 20190404
  Transmission Date: 20190711
  Serious: Yes (Other)
  Sender: FDA-Public Use
  Company Number: US-ABBVIE-19K-163-2722660-00

PATIENT
  Age: 36 Year
  Sex: Male
  Weight: 75.82 kg

DRUGS (3)
  1. PREDNISONE. [Concomitant]
     Active Substance: PREDNISONE
     Indication: CROHN^S DISEASE
  2. STEROIDS [Concomitant]
     Active Substance: UNSPECIFIED INGREDIENT
     Indication: PRODUCT USED FOR UNKNOWN INDICATION
     Route: 065
  3. HUMIRA [Suspect]
     Active Substance: ADALIMUMAB
     Indication: CROHN^S DISEASE
     Route: 058
     Dates: start: 2015, end: 201903

REACTIONS (7)
  - Intestinal obstruction [Recovering/Resolving]
  - Abdominal adhesions [Not Recovered/Not Resolved]
  - Intestinal stenosis [Recovered/Resolved]
  - Injection site pain [Not Recovered/Not Resolved]
  - Gastrointestinal disorder [Unknown]
  - Procedural pain [Recovering/Resolving]
  - Crohn^s disease [Recovering/Resolving]

NARRATIVE: CASE EVENT DATE: 2015
